FAERS Safety Report 25209879 (Version 1)
Quarter: 2025Q2

REPORT INFORMATION
  Report Type: Spontaneous
  Country: DE (occurrence: DE)
  Receive Date: 20250417
  Receipt Date: 20250417
  Transmission Date: 20250717
  Serious: Yes (Death)
  Sender: SANDOZ
  Company Number: DE-002147023-NVSC2021DE229233

PATIENT
  Sex: Female
  Weight: 55 kg

DRUGS (3)
  1. FULVESTRANT [Suspect]
     Active Substance: FULVESTRANT
     Indication: Breast cancer metastatic
     Dosage: 500 MG, QMO (DAILY DOSE)
     Route: 030
     Dates: start: 20200430, end: 20210401
  2. KISQALI [Suspect]
     Active Substance: RIBOCICLIB SUCCINATE
     Indication: Breast cancer metastatic
     Dosage: 400 MG, QD (SCHEMA 21 DAYS INTAKE, 7 DAYS PAUSE)
     Route: 048
     Dates: start: 20200506, end: 20200622
  3. KISQALI [Suspect]
     Active Substance: RIBOCICLIB SUCCINATE
     Dosage: 600 MG, QD (SCHEMA 21 DAYS INTAKE, 7 DAYS PAUSE)
     Route: 048
     Dates: start: 20200623, end: 20210401

REACTIONS (4)
  - Sepsis [Fatal]
  - Myelodysplastic syndrome [Fatal]
  - Metastases to bone marrow [Fatal]
  - Off label use [Unknown]

NARRATIVE: CASE EVENT DATE: 20210401
